FAERS Safety Report 8265225-6 (Version None)
Quarter: 2012Q2

REPORT INFORMATION
  Report Type: 
  Country: None (occurrence: None)
  Receive Date: 20120406
  Receipt Date: 20120327
  Transmission Date: 20120825
  Serious: Yes (Other)
  Sender: FDA-Public Use
  Company Number: JP-SANOFI-AVENTIS-2011SA038850

PATIENT
  Age: 13 Year
  Sex: Male
  Weight: 44 kg

DRUGS (18)
  1. FRAGMIN [Concomitant]
     Indication: PROPHYLAXIS
     Route: 042
     Dates: start: 20110323
  2. MANNIGEN [Concomitant]
     Indication: PROPHYLAXIS
     Route: 042
     Dates: end: 20110325
  3. SOLU-CORTEF [Concomitant]
     Indication: ADVERSE EVENT
     Route: 042
     Dates: start: 20110325
  4. ANTI-THYMOCYTE GLOBULIN EQUINE NOS [Suspect]
     Indication: PREMEDICATION
     Route: 042
     Dates: start: 20110326, end: 20110329
  5. ALL OTHER THERAPEUTIC PRODUCTS [Concomitant]
     Route: 042
     Dates: start: 20110326, end: 20110331
  6. RASURITEK INTRAVENOUS [Suspect]
     Indication: PROPHYLACTIC CHEMOTHERAPY
     Route: 041
     Dates: start: 20110323, end: 20110326
  7. KYTRIL [Concomitant]
     Indication: PROPHYLAXIS
     Route: 042
     Dates: start: 20110101
  8. KEITEN [Concomitant]
     Indication: ADVERSE EVENT
     Route: 042
     Dates: start: 20110325
  9. FUNGUARD [Concomitant]
     Indication: PROPHYLAXIS
     Route: 042
  10. THERAPEUTIC RADIOPHARMACEUTICALS [Concomitant]
     Indication: ACUTE LYMPHOCYTIC LEUKAEMIA RECURRENT
     Dosage: 5.4 GRAY TO THE ENTIRE BODY USING LINAC SIDE OPPOSITE 2 GATE
     Dates: start: 20110324, end: 20110325
  11. URSO 250 [Concomitant]
     Indication: PROPHYLAXIS
     Route: 048
  12. FLUDARABINE PHOSPHATE [Suspect]
     Indication: ACUTE LYMPHOCYTIC LEUKAEMIA RECURRENT
     Route: 042
     Dates: start: 20110326, end: 20110401
  13. ANTI-THYMOCYTE GLOBULIN EQUINE NOS [Suspect]
     Indication: ACUTE LYMPHOCYTIC LEUKAEMIA RECURRENT
     Route: 042
     Dates: start: 20110326, end: 20110329
  14. ALKERAN [Suspect]
     Indication: ACUTE LYMPHOCYTIC LEUKAEMIA RECURRENT
     Route: 042
     Dates: start: 20110330, end: 20110401
  15. ALL OTHER THERAPEUTIC PRODUCTS [Concomitant]
     Indication: PROPHYLAXIS
     Dosage: 3-4 TABLETS
     Route: 048
  16. BACCIDAL [Concomitant]
     Indication: PROPHYLAXIS
     Dosage: 3-4 TABLETS
     Route: 048
  17. HALIZON [Concomitant]
     Indication: PROPHYLAXIS
     Route: 048
  18. ATARAX [Concomitant]
     Indication: ADVERSE EVENT
     Route: 042
     Dates: start: 20110324, end: 20110324

REACTIONS (2)
  - WHITE BLOOD CELL COUNT DECREASED [None]
  - LYMPHOCYTE COUNT DECREASED [None]
